FAERS Safety Report 9447460 (Version 4)
Quarter: 2013Q3

REPORT INFORMATION
  Report Type: Spontaneous
  Country: US (occurrence: US)
  Receive Date: 20130808
  Receipt Date: 20130919
  Transmission Date: 20140515
  Serious: No
  Sender: FDA-Public Use
  Company Number: US-PFIZER INC-2013228216

PATIENT
  Age: 63 Year
  Sex: Female
  Weight: 59.41 kg

DRUGS (4)
  1. SUTENT [Suspect]
     Indication: RENAL CANCER
     Dosage: 50 MG, 1X/DAY
     Route: 048
     Dates: start: 20130723
  2. LISINOPRIL [Concomitant]
     Dosage: UNK
  3. METOPROLOL [Concomitant]
     Dosage: UNK
  4. CALCIUM WITH VITAMIN D [Concomitant]
     Dosage: UNK

REACTIONS (9)
  - Dysgeusia [Recovered/Resolved]
  - Vitreous floaters [Recovered/Resolved]
  - Chromaturia [Recovered/Resolved]
  - Oral discomfort [Recovered/Resolved]
  - Glossodynia [Recovered/Resolved]
  - Diarrhoea [Recovered/Resolved]
  - Pain in extremity [Recovered/Resolved]
  - Yellow skin [Recovered/Resolved]
  - White blood cell count decreased [Recovered/Resolved]
